FAERS Safety Report 10706259 (Version 1)
Quarter: 2015Q1

REPORT INFORMATION
  Report Type: Spontaneous
  Country: US (occurrence: None)
  Receive Date: 20150108
  Receipt Date: 20150108
  Transmission Date: 20150721
  Serious: Yes (Other)
  Sender: FDA-Public Use
  Company Number: 201412154

PATIENT
  Age: 51 Year

DRUGS (2)
  1. ANDROGEL [Suspect]
     Active Substance: TESTOSTERONE
  2. TESTIM [Suspect]
     Active Substance: TESTOSTERONE
     Indication: BLOOD TESTOSTERONE DECREASED
     Route: 062

REACTIONS (6)
  - Myocardial infarction [None]
  - Anxiety [None]
  - Impaired work ability [None]
  - Pain [None]
  - Emotional disorder [None]
  - Economic problem [None]

NARRATIVE: CASE EVENT DATE: 20130115
